FAERS Safety Report 10444223 (Version 2)
Quarter: 2014Q3

REPORT INFORMATION
  Report Type: Spontaneous
  Country: GB (occurrence: GB)
  Receive Date: 20140910
  Receipt Date: 20140927
  Transmission Date: 20150326
  Serious: Yes (Death, Hospitalization, Disabling, Congenital Anomaly, Other)
  Sender: FDA-Public Use
  Company Number: GB-JNJFOC-20140903920

PATIENT

DRUGS (1)
  1. NICOTINE TRANSDERMAL SYSTEM [Suspect]
     Active Substance: NICOTINE
     Indication: SMOKING CESSATION THERAPY
     Route: 064

REACTIONS (46)
  - Heart disease congenital [Unknown]
  - Necrotising colitis [Unknown]
  - Fallot^s tetralogy [Unknown]
  - Injury to brachial plexus due to birth trauma [Unknown]
  - Unresponsive to stimuli [Unknown]
  - Syndactyly [Unknown]
  - Asthma [Unknown]
  - Congenital cystic kidney disease [Unknown]
  - Arrhythmia [Unknown]
  - C-reactive protein increased [Unknown]
  - Clavicle fracture [Unknown]
  - Hypothermia [Unknown]
  - Aspiration [Unknown]
  - Temperature regulation disorder [Unknown]
  - Foetal exposure during pregnancy [Unknown]
  - General symptom [Unknown]
  - Respiratory disorder [Unknown]
  - Neurodevelopmental disorder [Unknown]
  - Premature baby [Unknown]
  - Shoulder dystocia [Unknown]
  - Pyelocaliectasis [Unknown]
  - Talipes [Unknown]
  - Cleft lip [Unknown]
  - Dehydration [Unknown]
  - Death [Fatal]
  - Mechanical ventilation [Unknown]
  - Sepsis [Unknown]
  - Wheezing [Unknown]
  - Foetal heart rate deceleration abnormality [Unknown]
  - Disability [Unknown]
  - Multiple congenital abnormalities [Unknown]
  - Congenital musculoskeletal anomaly [Unknown]
  - Jaundice [Unknown]
  - Apnoea neonatal [Unknown]
  - Lower respiratory tract infection [Unknown]
  - Convulsion neonatal [Unknown]
  - Foetal hypokinesia [Unknown]
  - Foetal growth restriction [Unknown]
  - Tachypnoea [Unknown]
  - Acute respiratory distress syndrome [Unknown]
  - Deafness congenital [Unknown]
  - Cleft palate [Unknown]
  - Intraventricular haemorrhage [Unknown]
  - Hypoglycaemia [Unknown]
  - Large for dates baby [Unknown]
  - Cough [Unknown]
